FAERS Safety Report 8221796-7 (Version None)
Quarter: 2012Q1

REPORT INFORMATION
  Report Type: 
  Country: None (occurrence: None)
  Receive Date: 20120320
  Receipt Date: 20120320
  Transmission Date: 20120608
  Serious: Yes (Hospitalization)
  Sender: FDA-Public Use
  Company Number: None

PATIENT
  Age: 83 Year
  Sex: Female

DRUGS (1)
  1. RANOLAZINE [Suspect]
     Indication: CARDIAC FAILURE CONGESTIVE
     Dosage: 500 MG
     Route: 048
     Dates: start: 20111201, end: 20111202

REACTIONS (7)
  - DIZZINESS [None]
  - SYNCOPE [None]
  - SHOCK [None]
  - BLOOD PRESSURE DECREASED [None]
  - HYPERHIDROSIS [None]
  - NAUSEA [None]
  - ASTHENIA [None]
